FAERS Safety Report 25906121 (Version 1)
Quarter: 2025Q4

REPORT INFORMATION
  Report Type: Report from Study
  Country: CA (occurrence: CA)
  Receive Date: 20251010
  Receipt Date: 20251010
  Transmission Date: 20260117
  Serious: Yes (Hospitalization)
  Sender: CSL BEHRING
  Company Number: CA-Vifor (International) Inc.-VIT-2024-05788

PATIENT
  Age: 82 Year
  Sex: Female

DRUGS (1)
  1. VELTASSA [Suspect]
     Active Substance: PATIROMER
     Indication: Hyperphosphataemia
     Dosage: TAKE 1 SACHET (8.4 GRAM) ONCE DAILY
     Route: 048
     Dates: start: 20230914, end: 2024

REACTIONS (4)
  - Hospitalisation [Unknown]
  - Product use issue [Unknown]
  - Off label use [Unknown]
  - Dyspepsia [Unknown]

NARRATIVE: CASE EVENT DATE: 20240101
